FAERS Safety Report 6019164-1 (Version None)
Quarter: 2008Q4

REPORT INFORMATION
  Report Type: 
  Country: None (occurrence: None)
  Receive Date: 20081224
  Receipt Date: 20081216
  Transmission Date: 20090506
  Serious: Yes (Death, Other)
  Sender: FDA-Public Use
  Company Number: CA-PFIZER INC-2008089778

PATIENT

DRUGS (3)
  1. SUTENT [Suspect]
     Indication: RENAL CELL CARCINOMA
     Dosage: 50 MG, 1X/DAY
     Route: 048
     Dates: start: 20080922, end: 20081019
  2. GABAPENTIN [Concomitant]
     Indication: PAIN
  3. HYDROMORPHONE HYDROCHLORIDE [Concomitant]

REACTIONS (4)
  - DISEASE PROGRESSION [None]
  - PANCYTOPENIA [None]
  - RENAL CELL CARCINOMA [None]
  - THROMBOCYTOPENIA [None]
